FAERS Safety Report 8571987-0 (Version None)
Quarter: 2012Q3

REPORT INFORMATION
  Report Type: 
  Country: None (occurrence: None)
  Receive Date: 20120806
  Receipt Date: 20120731
  Transmission Date: 20120928
  Serious: Yes (Life-Threatening, Hospitalization)
  Sender: FDA-Public Use
  Company Number: US-CELGENEUS-163-21880-12062599

PATIENT
  Sex: Female

DRUGS (31)
  1. REVLIMID [Suspect]
     Indication: MULTIPLE MYELOMA
     Dosage: 25 MILLIGRAM
     Route: 048
     Dates: start: 20120524, end: 20120615
  2. BUMEX [Concomitant]
     Route: 065
  3. SYNTHROID [Concomitant]
     Dosage: 25 MICROGRAM
     Route: 048
  4. ASPIRIN [Concomitant]
     Dosage: 324 MILLIGRAM
     Route: 065
  5. ACYCLOVIR [Concomitant]
     Dosage: 400 MILLIGRAM
     Route: 048
  6. DOCUSATE [Concomitant]
     Dosage: 100 MILLIGRAM
     Route: 048
  7. HD [Concomitant]
     Dosage: 2 LITERS
     Route: 065
  8. AMBIEN [Concomitant]
     Indication: SLEEP DISORDER
     Dosage: 0.5-1 (5MG TAB)
     Route: 048
  9. SODIUM CHLORIDE [Concomitant]
     Dosage: 500 MILLILITER
     Route: 041
  10. OMEPRAZOLE [Concomitant]
     Dosage: 20 MILLIGRAM
     Route: 048
  11. HD [Concomitant]
     Dosage: 4 LITERS
     Route: 065
  12. DILTIAZEM [Concomitant]
     Route: 065
  13. NEURONTIN [Concomitant]
     Route: 065
  14. ESTRACE [Concomitant]
     Dosage: 1 MILLIGRAM
     Route: 048
  15. REVLIMID [Suspect]
     Dosage: 5 MILLIGRAM
     Route: 048
     Dates: start: 20120711
  16. PROMETRIUM [Concomitant]
     Dosage: 100 MILLIGRAM
     Route: 048
  17. COMPAZINE [Concomitant]
     Indication: VOMITING
     Dosage: 10 MILLIGRAM
     Route: 048
  18. ONDANSETRON [Concomitant]
     Dosage: 16 MILLIGRAM
     Route: 041
  19. TORSEMIDE [Concomitant]
     Dosage: 20 MILLIGRAM
     Route: 048
  20. MAGNESIUM SULFATE [Concomitant]
     Dosage: 250 MILLIGRAM
     Route: 065
  21. VELCADE [Concomitant]
     Route: 058
  22. VELCADE [Concomitant]
     Dosage: 1 MILLIGRAM/SQ. METER
     Route: 041
  23. DECADRON PHOSPHATE [Concomitant]
     Dosage: 5 TABS
     Route: 065
  24. ATIVAN [Concomitant]
     Route: 065
  25. BIFIDOBACTERIUM INFANTIS [Concomitant]
     Dosage: 4 MILLIGRAM
     Route: 048
  26. GABAPENTIN [Concomitant]
     Dosage: 300 MILLIGRAM
     Route: 048
  27. PRILOSEC [Concomitant]
     Route: 065
  28. M.V.I. [Concomitant]
     Route: 065
  29. LORATADINE [Concomitant]
     Dosage: 10 MILLIGRAM
     Route: 048
  30. HORMONE REPLACEMENT THERAPY [Concomitant]
     Indication: POSTMENOPAUSE
     Route: 065
  31. XANAX [Concomitant]
     Indication: ANXIETY
     Dosage: .25 MILLIGRAM
     Route: 048

REACTIONS (4)
  - ATRIAL FLUTTER [None]
  - CARDIAC FAILURE CONGESTIVE [None]
  - RENAL FAILURE [None]
  - CARDIAC FAILURE [None]
